FAERS Safety Report 8926254 (Version 2)
Quarter: 2012Q4

REPORT INFORMATION
  Report Type: Report from Study
  Country: JP (occurrence: JP)
  Receive Date: 20121126
  Receipt Date: 20121227
  Transmission Date: 20130627
  Serious: Yes (Hospitalization, Other)
  Sender: FDA-Public Use
  Company Number: JP-VERTEX PHARMACEUTICAL INC.-AE-2012-004554

PATIENT
  Age: 73 Year
  Sex: Female

DRUGS (17)
  1. VX-950 (TELAPREVIR) [Suspect]
     Indication: CHRONIC HEPATITIS C
     Dosage: 1500 mg, qd
     Route: 048
     Dates: start: 20120202, end: 20120214
  2. PEGINTRON                          /01543001/ [Suspect]
     Indication: CHRONIC HEPATITIS C
     Dosage: 1.5 ?g/kg, qw
     Route: 058
     Dates: start: 20120202, end: 20120214
  3. PEGINTRON                          /01543001/ [Suspect]
     Dosage: 1.5 ?g/kg, qw
     Route: 058
     Dates: start: 20120223, end: 20120229
  4. PEGINTRON                          /01543001/ [Suspect]
     Dosage: 0.75 ?g/kg, qw
     Route: 058
     Dates: start: 20120301, end: 20120306
  5. PEGINTRON                          /01543001/ [Suspect]
     Dosage: 1.5 ?g/kg, qw
     Route: 058
     Dates: start: 20120307, end: 20120313
  6. RIBAVIRIN [Suspect]
     Indication: CHRONIC HEPATITIS C
     Dosage: 600 mg, qd
     Route: 048
     Dates: start: 20120202, end: 20120214
  7. RIBAVIRIN [Suspect]
     Dosage: 400 mg, qd
     Route: 048
     Dates: start: 20120215, end: 20120306
  8. RIBAVIRIN [Suspect]
     Dosage: 200 mg, qd
     Route: 048
     Dates: start: 20120307, end: 20120313
  9. ONEALFA [Concomitant]
     Dosage: 0.25 ?g, qd
     Route: 048
  10. FAMOTIDINE [Concomitant]
     Dosage: 20 mg, qd
     Route: 048
  11. UNISIA [Concomitant]
     Dosage: 1 DF, qd
     Route: 048
  12. BLOPRESS [Concomitant]
     Dosage: 8 mg, qd
     Route: 048
  13. GASMOTIN [Concomitant]
     Dosage: 15 mg, qd
     Route: 048
     Dates: start: 20120214
  14. DOMPERIDONE [Concomitant]
     Dosage: 10 mg, qd
     Route: 048
     Dates: start: 20120215
  15. MYSLEE [Concomitant]
     Dosage: 5 mg, prn
     Route: 048
     Dates: start: 20120328
  16. GLYCYRON                           /00466401/ [Concomitant]
     Dosage: 6 DF, qd
     Route: 048
     Dates: start: 20120502
  17. URSO                               /00465701/ [Concomitant]
     Dosage: 600 mg, qd
     Route: 048
     Dates: start: 20120516

REACTIONS (3)
  - Neutrophil count decreased [Recovered/Resolved]
  - Decreased appetite [Recovered/Resolved]
  - Decreased appetite [Recovered/Resolved]
